FAERS Safety Report 8107113-1 (Version None)
Quarter: 2011Q4

REPORT INFORMATION
  Report Type: 
  Country: None (occurrence: None)
  Receive Date: 20111227
  Receipt Date: 20110916
  Transmission Date: 20120403
  Serious: No
  Sender: FDA-Public Use
  Company Number: PHEH2011US04413

PATIENT

DRUGS (1)
  1. GILENYA [Suspect]

REACTIONS (2)
  - URTICARIA [None]
  - SWELLING FACE [None]
